FAERS Safety Report 10022958 (Version 1)
Quarter: 2014Q1

REPORT INFORMATION
  Report Type: Spontaneous
  Country: US (occurrence: US)
  Receive Date: 20140319
  Receipt Date: 20140319
  Transmission Date: 20141002
  Serious: No
  Sender: FDA-Public Use
  Company Number: US-SA-2014SA021068

PATIENT
  Age: 69 Year
  Sex: Female

DRUGS (2)
  1. NASACORT ALLERGY [Suspect]
     Indication: SINUS HEADACHE
     Dosage: FREQUENCY:-2 IN EACH DAILY
     Route: 065
     Dates: start: 20140214, end: 20140217
  2. NASACORT ALLERGY [Suspect]
     Indication: HEADACHE
     Dosage: FREQUENCY:-2 IN EACH DAILY
     Route: 065
     Dates: start: 20140214, end: 20140217

REACTIONS (1)
  - Drug ineffective for unapproved indication [Unknown]
